FAERS Safety Report 9163059 (Version 1)
Quarter: 2013Q1

REPORT INFORMATION
  Report Type: Spontaneous
  Country: US (occurrence: None)
  Receive Date: 20130313
  Receipt Date: 20130313
  Transmission Date: 20140127
  Serious: Yes (Other)
  Sender: FDA-Public Use
  Company Number: None

PATIENT
  Age: 51 Year
  Sex: Female
  Weight: 53.52 kg

DRUGS (1)
  1. ESCITALOPRAM [Suspect]
     Indication: ANXIETY
     Route: 048
     Dates: start: 20130310, end: 20130311

REACTIONS (11)
  - Nausea [None]
  - Tremor [None]
  - Tremor [None]
  - Dizziness [None]
  - Feeling abnormal [None]
  - Anxiety [None]
  - Malaise [None]
  - Chemical poisoning [None]
  - Activities of daily living impaired [None]
  - Impaired driving ability [None]
  - Product quality issue [None]
